FAERS Safety Report 4367397-2 (Version None)
Quarter: 2004Q2

REPORT INFORMATION
  Report Type: 
  Country: None (occurrence: None)
  Receive Date: 20040528
  Receipt Date: 20040528
  Transmission Date: 20050107
  Serious: Yes (Hospitalization)
  Sender: FDA-Public Use
  Company Number: None

PATIENT
  Sex: Male
  Weight: 72.5755 kg

DRUGS (6)
  1. REMICADE [Suspect]
     Indication: RHEUMATOID ARTHRITIS
     Dosage: 300 MG INITISTION IV
     Route: 042
     Dates: start: 20040121, end: 20040407
  2. PREDNISONE [Concomitant]
  3. ARTHROTEC [Concomitant]
  4. IMDUR [Concomitant]
  5. CARDIZEM [Concomitant]
  6. ZANTAC [Concomitant]

REACTIONS (2)
  - ABDOMINAL ADHESIONS [None]
  - ABDOMINAL DISCOMFORT [None]
